FAERS Safety Report 12488647 (Version 1)
Quarter: 2016Q2

REPORT INFORMATION
  Report Type: Spontaneous
  Country: US (occurrence: US)
  Receive Date: 20160622
  Receipt Date: 20160622
  Transmission Date: 20160815
  Serious: Yes (Other)
  Sender: FDA-Public Use
  Company Number: US-MALLINCKRODT-T201600247

PATIENT
  Sex: Male

DRUGS (12)
  1. ATROVENT [Concomitant]
     Active Substance: IPRATROPIUM BROMIDE
  2. KEPPRA [Concomitant]
     Active Substance: LEVETIRACETAM
  3. SCOPOLAMINE [Concomitant]
     Active Substance: SCOPOLAMINE
  4. FERROUS SULFATE. [Concomitant]
     Active Substance: FERROUS SULFATE
  5. DIAZEPAM. [Concomitant]
     Active Substance: DIAZEPAM
  6. MIRALAX [Concomitant]
     Active Substance: POLYETHYLENE GLYCOL 3350
  7. ROBINUL [Concomitant]
     Active Substance: GLYCOPYRROLATE
  8. ATIVAN [Concomitant]
     Active Substance: LORAZEPAM
  9. GABLOFEN [Suspect]
     Active Substance: BACLOFEN
     Indication: MUSCLE SPASTICITY
     Dosage: 49.96 MCG/DAY
     Route: 037
  10. CLONIDINE. [Concomitant]
     Active Substance: CLONIDINE
  11. SIMETHICONE (DIMETHICONE) [Concomitant]
     Active Substance: DIMETHICONE
  12. FUROSEMIDE. [Concomitant]
     Active Substance: FUROSEMIDE

REACTIONS (3)
  - Wound dehiscence [Unknown]
  - Postoperative wound infection [Recovering/Resolving]
  - Wound contamination [Unknown]
